FAERS Safety Report 4712075-0 (Version None)
Quarter: 2005Q3

REPORT INFORMATION
  Report Type: 
  Country: None (occurrence: None)
  Receive Date: 20050708
  Receipt Date: 20041207
  Transmission Date: 20060218
  Serious: Yes (Other)
  Sender: FDA-Public Use
  Company Number: US-2004-035781

PATIENT

DRUGS (1)
  1. ULTRAVIST 300 [Suspect]
     Dosage: 1 DOSE
     Dates: start: 20040101, end: 20040101

REACTIONS (3)
  - BLOOD PRESSURE DECREASED [None]
  - DIZZINESS [None]
  - URTICARIA [None]
